FAERS Safety Report 19439035 (Version 2)
Quarter: 2021Q2

REPORT INFORMATION
  Report Type: Spontaneous
  Country: JP (occurrence: JP)
  Receive Date: 20210618
  Receipt Date: 20210629
  Transmission Date: 20210717
  Serious: Yes (Other)
  Sender: FDA-Public Use
  Company Number: JP-TAKEDA-2021TUS038384

PATIENT
  Sex: Male

DRUGS (2)
  1. LIALDA [Suspect]
     Active Substance: MESALAMINE
     Indication: PRODUCT USED FOR UNKNOWN INDICATION
     Dosage: 1 DOSAGE FORM
     Route: 048
     Dates: start: 2020, end: 2020
  2. LIALDA [Suspect]
     Active Substance: MESALAMINE
     Dosage: 4800 MILLIGRAM, QD
     Route: 048
     Dates: start: 202105

REACTIONS (3)
  - Haemorrhage subcutaneous [Unknown]
  - Otitis media [Unknown]
  - Anti-neutrophil cytoplasmic antibody positive vasculitis [Unknown]

NARRATIVE: CASE EVENT DATE: 2021
